FAERS Safety Report 17836085 (Version 7)
Quarter: 2020Q3

REPORT INFORMATION
  Report Type: Spontaneous
  Country: JP (occurrence: JP)
  Receive Date: 20200528
  Receipt Date: 20200813
  Transmission Date: 20201103
  Serious: Yes (Death, Life-Threatening)
  Sender: FDA-Public Use
  Company Number: JP-CELGENEUS-JPN-20200502372

PATIENT
  Age: 65 Year
  Sex: Male
  Weight: 61.6 kg

DRUGS (17)
  1. REVLIMID [Suspect]
     Active Substance: LENALIDOMIDE
     Indication: B-CELL LYMPHOMA
     Dosage: 4 CAPSULE
     Route: 048
     Dates: start: 20200416, end: 20200504
  2. RITUXAN [Concomitant]
     Active Substance: RITUXIMAB
     Dosage: UNKNOWN
     Route: 065
     Dates: start: 2014
  3. LEVOFLOXACIN. [Concomitant]
     Active Substance: LEVOFLOXACIN
     Indication: PYREXIA
  4. VICCLOX [Concomitant]
     Active Substance: ACYCLOVIR SODIUM
     Indication: ANTIVIRAL PROPHYLAXIS
     Dosage: 200 MILLIGRAM
     Route: 048
     Dates: end: 20200506
  5. RITUXAN [Concomitant]
     Active Substance: RITUXIMAB
     Dosage: UNKNOWN
     Route: 065
     Dates: start: 20191224
  6. RITUXAN [Concomitant]
     Active Substance: RITUXIMAB
     Dosage: UNKNOWN
     Route: 065
     Dates: start: 2010
  7. RITUXAN [Concomitant]
     Active Substance: RITUXIMAB
     Dosage: 630 MILLIGRAM
     Route: 041
     Dates: start: 20200501, end: 20200501
  8. LEVOFLOXACIN. [Concomitant]
     Active Substance: LEVOFLOXACIN
     Indication: INFECTION
  9. LANSOPRAZOLE. [Concomitant]
     Active Substance: LANSOPRAZOLE
     Indication: PROPHYLAXIS
     Dosage: 15 MILLIGRAM
     Route: 048
     Dates: start: 20200416, end: 20200506
  10. BAYASPIRIN [Concomitant]
     Active Substance: ASPIRIN
     Indication: PROPHYLAXIS
     Dosage: 100 MILLIGRAM
     Route: 048
     Dates: start: 20200416, end: 20200506
  11. MIYA?BM [Concomitant]
     Active Substance: CLOSTRIDIUM BUTYRICUM SPORES STRAIN M-55
     Indication: ABDOMINAL SYMPTOM
     Dosage: 40 MILLIGRAM
     Route: 048
     Dates: end: 20200506
  12. RITUXAN [Concomitant]
     Active Substance: RITUXIMAB
     Dosage: UNKNOWN
     Route: 065
     Dates: start: 2010, end: 2010
  13. RITUXAN [Concomitant]
     Active Substance: RITUXIMAB
     Dosage: UNKNOWN
     Route: 065
     Dates: start: 2011
  14. LEVOFLOXACIN. [Concomitant]
     Active Substance: LEVOFLOXACIN
     Indication: NEUTROPHIL COUNT DECREASED
     Dosage: 500 MILLIGRAM
     Route: 048
     Dates: start: 20200504, end: 20200505
  15. RITUXAN [Concomitant]
     Active Substance: RITUXIMAB
     Indication: B-CELL LYMPHOMA
     Dosage: UNKNOWN
     Route: 065
     Dates: start: 2009
  16. RITUXAN [Concomitant]
     Active Substance: RITUXIMAB
     Dosage: 630 MILLIGRAM
     Route: 041
     Dates: start: 20200416, end: 20200416
  17. RITUXAN [Concomitant]
     Active Substance: RITUXIMAB
     Dosage: 630 MILLIGRAM
     Route: 041
     Dates: start: 20200423, end: 20200423

REACTIONS (4)
  - Rhabdomyolysis [Fatal]
  - Cerebral infarction [Fatal]
  - Cardiac arrest [Fatal]
  - Multiple organ dysfunction syndrome [Fatal]

NARRATIVE: CASE EVENT DATE: 20200505
